FAERS Safety Report 5417984-5 (Version None)
Quarter: 2007Q3

REPORT INFORMATION
  Report Type: 
  Country: None (occurrence: None)
  Receive Date: 20070817
  Receipt Date: 20070806
  Transmission Date: 20080115
  Serious: Yes (Death, Hospitalization)
  Sender: FDA-Public Use
  Company Number: SE-PURDUE-GBR_2007_0003172

PATIENT
  Age: 6 Year
  Sex: Female

DRUGS (9)
  1. OXYNORM CAPSULES [Suspect]
     Indication: DRUG USE FOR UNKNOWN INDICATION
     Dosage: 32 MG, DAILY
     Route: 048
  2. STESOLID [Suspect]
     Indication: DRUG USE FOR UNKNOWN INDICATION
     Dosage: 15 MG, DAILY
     Route: 054
  3. CATAPRES [Suspect]
     Indication: DRUG USE FOR UNKNOWN INDICATION
     Dosage: 16-32 ML (20 MCG/ML; 1 MG/H)
     Route: 042
  4. MORPHINE [Suspect]
     Indication: DRUG USE FOR UNKNOWN INDICATION
     Dosage: .8 MG, Q1H
     Route: 042
  5. KAVEPENIN [Concomitant]
     Indication: TONSILLITIS
     Route: 065
  6. BACLOFEN [Concomitant]
     Indication: DRUG USE FOR UNKNOWN INDICATION
     Dosage: 640-1600 MCG DAILY
     Route: 037
  7. LANEXAT [Concomitant]
     Indication: DRUG USE FOR UNKNOWN INDICATION
     Route: 065
  8. MIDAZOLAM HCL [Concomitant]
     Indication: DRUG USE FOR UNKNOWN INDICATION
     Dosage: 2 ML, Q1H
     Route: 065
  9. NITRAZEPAM [Concomitant]
     Indication: DRUG USE FOR UNKNOWN INDICATION
     Dosage: UNK, UNK
     Route: 065

REACTIONS (9)
  - ANXIETY [None]
  - BODY TEMPERATURE INCREASED [None]
  - BRONCHITIS [None]
  - BRONCHOPNEUMONIA [None]
  - DEPRESSED LEVEL OF CONSCIOUSNESS [None]
  - DYSTONIA [None]
  - HYPERHIDROSIS [None]
  - MUSCLE RIGIDITY [None]
  - RESPIRATORY RATE DECREASED [None]
